FAERS Safety Report 5756659-X (Version None)
Quarter: 2008Q2

REPORT INFORMATION
  Report Type: 
  Country: None (occurrence: None)
  Receive Date: 20080528
  Receipt Date: 20080513
  Transmission Date: 20081010
  Serious: Yes (Hospitalization)
  Sender: FDA-Public Use
  Company Number: PERC20080046

PATIENT
  Age: 52 Year
  Sex: Male
  Weight: 77.3 kg

DRUGS (12)
  1. PERCOCET [Suspect]
     Indication: PAIN
     Dosage: PER ORAL
     Route: 048
  2. TEMODAR [Suspect]
     Indication: GLIOBLASTOMA MULTIFORME
     Dosage: 145 MG, DAILY, PER ORAL
     Route: 048
     Dates: start: 20080317, end: 20080428
  3. PREVACID [Suspect]
     Dosage: PER ORAL
     Route: 048
  4. ZOCOR [Suspect]
     Dosage: PER ORAL
     Route: 048
  5. KEPPRA [Suspect]
     Indication: CONVULSION PROPHYLAXIS
     Dates: start: 20080423
  6. DILANTIN [Suspect]
     Indication: CONVULSION PROPHYLAXIS
  7. COREG [Suspect]
     Dosage: PER ORAL
     Route: 048
  8. SYNTHROID [Suspect]
     Dosage: PER ORAL
     Route: 048
  9. HYDROXYZINE [Suspect]
  10. CLOTRIMAZOLE [Suspect]
  11. ZETIA [Suspect]
  12. ZOFRAN [Suspect]

REACTIONS (3)
  - ABDOMINAL PAIN [None]
  - DRUG HYPERSENSITIVITY [None]
  - RASH PRURITIC [None]
